FAERS Safety Report 21942855 (Version 6)
Quarter: 2023Q2

REPORT INFORMATION
  Report Type: Report from Study
  Country: US (occurrence: US)
  Receive Date: 20230202
  Receipt Date: 20230510
  Transmission Date: 20230721
  Serious: Yes (Other)
  Sender: FDA-Public Use
  Company Number: US-002147023-NVSC2022US157110

PATIENT
  Sex: Female

DRUGS (1)
  1. COSENTYX [Suspect]
     Active Substance: SECUKINUMAB
     Indication: Product used for unknown indication
     Dosage: UNK
     Route: 065

REACTIONS (10)
  - Rheumatoid arthritis [Unknown]
  - Metal poisoning [Unknown]
  - Thrombosis [Unknown]
  - Ankylosing spondylitis [Unknown]
  - Gait disturbance [Unknown]
  - Scoliosis [Unknown]
  - Musculoskeletal discomfort [Unknown]
  - Osteoarthritis [Unknown]
  - Joint dislocation [Unknown]
  - Pain [Unknown]
